FAERS Safety Report 22532830 (Version 1)
Quarter: 2023Q2

REPORT INFORMATION
  Report Type: Report from Study
  Country: ES (occurrence: ES)
  Receive Date: 20230607
  Receipt Date: 20230607
  Transmission Date: 20230721
  Serious: Yes (Hospitalization)
  Sender: FDA-Public Use
  Company Number: ES-002147023-PHHY2019ES081771

PATIENT
  Age: 82 Year
  Sex: Male

DRUGS (6)
  1. HYDROCHLOROTHIAZIDE [Suspect]
     Active Substance: HYDROCHLOROTHIAZIDE
     Indication: Oedema
     Dosage: 25 MG, QD
     Route: 048
     Dates: start: 201803, end: 20181203
  2. FUROSEMIDE [Suspect]
     Active Substance: FUROSEMIDE
     Indication: Hypertension
     Dosage: 80 MG, QD
     Route: 048
     Dates: start: 201008, end: 20181203
  3. PREDNISONE [Concomitant]
     Active Substance: PREDNISONE
     Indication: Myasthenia gravis
     Dosage: 50 MG, QD
     Route: 048
     Dates: start: 201211, end: 20181203
  4. POTASSIUM [Concomitant]
     Active Substance: POTASSIUM
     Indication: Hypokalaemia
     Dosage: 1.2 G, QD
     Route: 048
     Dates: start: 201806, end: 20181203
  5. AZATHIOPRINE [Concomitant]
     Active Substance: AZATHIOPRINE
     Indication: Myasthenia gravis
     Dosage: 50 MG, QD
     Route: 048
     Dates: start: 201809
  6. ATORVASTATIN [Concomitant]
     Active Substance: ATORVASTATIN
     Indication: Dyslipidaemia
     Dosage: 20 MG, QD
     Route: 048
     Dates: start: 2011, end: 20181203

REACTIONS (2)
  - Hyponatraemia [Recovered/Resolved]
  - Hypokalaemia [Recovered/Resolved]

NARRATIVE: CASE EVENT DATE: 20181203
